FAERS Safety Report 20133945 (Version 2)
Quarter: 2022Q1

REPORT INFORMATION
  Report Type: Spontaneous
  Country: GB (occurrence: GB)
  Receive Date: 20211201
  Receipt Date: 20220129
  Transmission Date: 20220423
  Serious: Yes (Death, Other)
  Sender: FDA-Public Use
  Company Number: GB-NOVARTISPH-NVSC2021GB271747

PATIENT

DRUGS (1)
  1. KYMRIAH [Suspect]
     Active Substance: TISAGENLECLEUCEL
     Indication: Acute lymphocytic leukaemia
     Dosage: UNK
     Route: 041

REACTIONS (4)
  - Death [Fatal]
  - Multiple organ dysfunction syndrome [Recovering/Resolving]
  - Cytokine release syndrome [Recovering/Resolving]
  - Malaise [Unknown]
